FAERS Safety Report 5511145-7 (Version None)
Quarter: 2007Q4

REPORT INFORMATION
  Report Type: 
  Country: None (occurrence: None)
  Receive Date: 20071109
  Receipt Date: 20071029
  Transmission Date: 20080405
  Serious: Yes (Hospitalization, Other)
  Sender: FDA-Public Use
  Company Number: US-NOVOPROD-258436

PATIENT

DRUGS (17)
  1. ACTIVELLA [Suspect]
     Indication: MENOPAUSAL SYMPTOMS
     Dosage: UNKNOWN
     Route: 048
     Dates: start: 19990801, end: 20021001
  2. PREMARIN [Suspect]
     Indication: MENOPAUSAL SYMPTOMS
     Dosage: .625 MG, UNK
     Dates: start: 19910901, end: 19980401
  3. PROVERA [Suspect]
     Indication: MENOPAUSAL SYMPTOMS
     Dosage: 2.5 MG, UNK
     Dates: start: 19910901, end: 19940401
  4. PROVERA [Suspect]
     Dosage: 10 MG, UNK
     Dates: start: 19940401, end: 19980801
  5. PROVERA [Suspect]
     Dosage: 2.5 MG, UNK
     Dates: start: 19980801, end: 19981101
  6. PREMPRO [Suspect]
     Indication: MENOPAUSAL SYMPTOMS
     Dosage: .625 MG / 2.5MG, UNK
     Dates: start: 19980401, end: 19981101
  7. PREMPRO [Suspect]
     Dosage: .625 MG /2.5 MG
     Dates: start: 19990701, end: 19991101
  8. PREMPRO [Suspect]
     Dosage: .625 MG/ 0.5MG
     Dates: start: 19981101, end: 19990701
  9. PREMPRO [Suspect]
     Dosage: .625 MG/.05 MG
     Dates: start: 19991101, end: 20010401
  10. MPA [Suspect]
     Indication: MENOPAUSAL SYMPTOMS
     Dosage: UNKNOWN
     Dates: start: 19870101, end: 20010101
  11. NAPROSYN [Concomitant]
     Dates: start: 19980101, end: 19990101
  12. CELEBREX [Concomitant]
     Dates: start: 19990101, end: 20060101
  13. IRON [Concomitant]
  14. GLUCOSAMINE [Concomitant]
  15. VITAMIN E                          /00110501/ [Concomitant]
  16. ELAVIL [Concomitant]
     Dosage: 25 MG, UNK
     Dates: start: 20020101
  17. FOSAMAX [Concomitant]
     Dates: start: 20050601

REACTIONS (4)
  - BREAST CANCER [None]
  - BREAST CANCER FEMALE [None]
  - OESTROGEN RECEPTOR ASSAY POSITIVE [None]
  - PROGESTERONE RECEPTOR ASSAY POSITIVE [None]
